FAERS Safety Report 6714911-5 (Version None)
Quarter: 2010Q2

REPORT INFORMATION
  Report Type: 
  Country: None (occurrence: None)
  Receive Date: 20100506
  Receipt Date: 20100506
  Transmission Date: 20101027
  Serious: Yes (Other)
  Sender: FDA-Public Use
  Company Number: None

PATIENT
  Age: 6 Year
  Sex: Female
  Weight: 27 kg

DRUGS (1)
  1. CHILDREN'S MOTRIN [Suspect]
     Indication: PYREXIA
     Dosage: 10 ML Q 6 HOURS PO
     Route: 048
     Dates: start: 20100316, end: 20100321

REACTIONS (6)
  - ABDOMINAL PAIN [None]
  - CAMPYLOBACTER INFECTION [None]
  - CULTURE POSITIVE [None]
  - HAEMATOCHEZIA [None]
  - LYMPHADENITIS VIRAL [None]
  - PYREXIA [None]
